FAERS Safety Report 12588830 (Version 1)
Quarter: 2016Q3

REPORT INFORMATION
  Report Type: Spontaneous
  Country: US (occurrence: US)
  Receive Date: 20160725
  Receipt Date: 20160725
  Transmission Date: 20161109
  Serious: No
  Sender: FDA-Public Use
  Company Number: US-JNJFOC-20160622000

PATIENT
  Age: 86 Year
  Sex: Female
  Weight: 60.78 kg

DRUGS (1)
  1. TYLENOL EXTRA STRENGTH [Suspect]
     Active Substance: ACETAMINOPHEN
     Indication: ANALGESIC THERAPY
     Dosage: 1 CAPLET, AS NEEDED
     Route: 048

REACTIONS (3)
  - Product container issue [Unknown]
  - Incorrect product storage [Unknown]
  - Product closure removal difficult [Unknown]
